FAERS Safety Report 17978116 (Version 1)
Quarter: 2020Q3

REPORT INFORMATION
  Report Type: Spontaneous
  Country: PT (occurrence: PT)
  Receive Date: 20200703
  Receipt Date: 20200703
  Transmission Date: 20201103
  Serious: Yes (Death, Hospitalization, Other)
  Sender: FDA-Public Use
  Company Number: PT-ACCORD-188661

PATIENT
  Age: 66 Year
  Sex: Male

DRUGS (2)
  1. TACROLIMUS. [Suspect]
     Active Substance: TACROLIMUS
     Indication: RENAL TRANSPLANT
     Dosage: UNK UNK, UNKNOWN FREQ.
     Route: 065
  2. PREDNISOLONE. [Suspect]
     Active Substance: PREDNISOLONE
     Indication: RENAL TRANSPLANT
     Dosage: UNK UNK, UNKNOWN FREQ.
     Route: 065

REACTIONS (9)
  - Cytomegalovirus infection [Fatal]
  - Coma [Fatal]
  - Pneumonia [Fatal]
  - Meningoencephalitis bacterial [Fatal]
  - Respiratory failure [Fatal]
  - Strongyloidiasis [Fatal]
  - Enterococcal infection [Fatal]
  - Disseminated strongyloidiasis [Fatal]
  - Superinfection bacterial [Fatal]
